FAERS Safety Report 8139827-1 (Version None)
Quarter: 2012Q1

REPORT INFORMATION
  Report Type: 
  Country: None (occurrence: None)
  Receive Date: 20120215
  Receipt Date: 20101123
  Transmission Date: 20120608
  Serious: Yes (Hospitalization)
  Sender: FDA-Public Use
  Company Number: GB-ASTRAZENECA-2010SE55712

PATIENT
  Age: 53 Year
  Sex: Female
  Weight: 73 kg

DRUGS (7)
  1. ATENOLOL [Concomitant]
     Indication: HYPERTENSION
     Route: 048
  2. ROSUVASTATIN [Concomitant]
     Route: 048
  3. ROSUVASTATIN [Concomitant]
     Route: 048
  4. OMEPRAZOLE [Suspect]
     Indication: DYSPEPSIA
     Route: 048
     Dates: end: 20100927
  5. CANDESARTAN CILEXETIL [Concomitant]
     Indication: HYPERTENSION
     Route: 048
  6. FELODIPINE [Concomitant]
     Indication: HYPERTENSION
     Route: 048
  7. FELODIPINE [Concomitant]
     Route: 048

REACTIONS (3)
  - HYPOMAGNESAEMIA [None]
  - HYPOCALCAEMIA [None]
  - HYPOAESTHESIA [None]
